FAERS Safety Report 5759647-2 (Version None)
Quarter: 2008Q2

REPORT INFORMATION
  Report Type: 
  Country: None (occurrence: None)
  Receive Date: 20080605
  Receipt Date: 20080526
  Transmission Date: 20081010
  Serious: Yes (Hospitalization)
  Sender: FDA-Public Use
  Company Number: US-KINGPHARMUSA00001-K200800591

PATIENT

DRUGS (6)
  1. ALTACE [Suspect]
     Dosage: 5 MG, BID
     Route: 048
  2. CORDARONE [Suspect]
     Dosage: 1 U, QD
  3. PREVISCAN                          /00789001/ [Suspect]
     Indication: PROPHYLAXIS
     Dosage: 5 MG, ALTERNATED WITH 10 MG, EVERY TWO DAYS
     Route: 048
     Dates: end: 20080212
  4. AMOXICILLIN [Suspect]
     Indication: NASOPHARYNGITIS
     Dates: start: 20080131, end: 20080212
  5. AMBROXOL [Suspect]
     Dosage: 30 MG, QD
     Dates: start: 20080131, end: 20080212
  6. MIFLONIL [Suspect]
     Dosage: UNK, UNK
     Dates: start: 20080211, end: 20080212

REACTIONS (7)
  - ANAEMIA [None]
  - ANGIOLIPOMA [None]
  - DRUG INTERACTION [None]
  - FALL [None]
  - INJURY [None]
  - INTERNATIONAL NORMALISED RATIO INCREASED [None]
  - PERIRENAL HAEMATOMA [None]
